FAERS Safety Report 6307752-4 (Version None)
Quarter: 2009Q3

REPORT INFORMATION
  Report Type: 
  Country: None (occurrence: None)
  Receive Date: 20090812
  Receipt Date: 20090812
  Transmission Date: 20100115
  Serious: Yes (Hospitalization)
  Sender: FDA-Public Use
  Company Number: None

PATIENT
  Sex: Male
  Weight: 96.7 kg

DRUGS (8)
  1. CYTARABINE [Suspect]
     Dosage: 1960 MG
     Dates: end: 20090512
  2. MERCAPTOPURINE [Suspect]
     Dosage: 1125 MG
     Dates: end: 20090512
  3. METHOTREXATE [Suspect]
     Dosage: 60 MG
     Dates: end: 20090504
  4. ONCASPAR [Suspect]
     Dosage: 100 IU
     Dates: end: 20090428
  5. VINCRISTINE SULFATE [Suspect]
     Dosage: 4 MG
     Dates: end: 20090504
  6. CYCLOPHOSPHAMIDE [Suspect]
     Dosage: 4360 MG
     Dates: start: 20090508
  7. BACTRIM [Concomitant]
  8. IV SOLU-CORTEF [Concomitant]

REACTIONS (7)
  - ANXIETY [None]
  - DYSPNOEA [None]
  - FLUSHING [None]
  - HYPOTENSION [None]
  - INFUSION RELATED REACTION [None]
  - NAUSEA [None]
  - PYREXIA [None]
